FAERS Safety Report 25731908 (Version 1)
Quarter: 2025Q3

REPORT INFORMATION
  Report Type: Spontaneous
  Country: US (occurrence: US)
  Receive Date: 20250827
  Receipt Date: 20250827
  Transmission Date: 20251021
  Serious: Yes (Hospitalization)
  Sender: MDD OPERATIONS
  Company Number: US-MDD US Operations-MDD202508-003192

PATIENT
  Age: 63 Year
  Sex: Female
  Weight: 72.12 kg

DRUGS (13)
  1. APOKYN [Suspect]
     Active Substance: APOMORPHINE HYDROCHLORIDE
     Indication: Parkinson^s disease
     Dosage: FIVE TIMES A DAY
     Dates: start: 20240625
  2. PRAZOSIN [Concomitant]
     Active Substance: PRAZOSIN
     Dosage: OD
  3. QUETIAPINE [Concomitant]
     Active Substance: QUETIAPINE
     Dosage: OD
  4. QUETIAPINE [Concomitant]
     Active Substance: QUETIAPINE
     Dosage: OD
  5. FAMOTIDINE [Concomitant]
     Active Substance: FAMOTIDINE
     Dosage: OD
  6. METHIMAZOLE [Concomitant]
     Active Substance: METHIMAZOLE
     Dosage: OD
  7. CARBIDOPA LEVODOPA [Concomitant]
     Active Substance: CARBIDOPA\LEVODOPA
     Dosage: 25/250MG; 4 TIMES A DAY
  8. BENZTROPINE [Concomitant]
     Active Substance: BENZTROPINE
     Dosage: OD
  9. OXCARBAZEPINE [Concomitant]
     Active Substance: OXCARBAZEPINE
     Dosage: TWICE A DAY
  10. OMEPRAZOLE [Concomitant]
     Active Substance: OMEPRAZOLE
     Dosage: OD
  11. LOSARTAN [Concomitant]
     Active Substance: LOSARTAN
     Dosage: OD
  12. CLONAZEPAM [Concomitant]
     Active Substance: CLONAZEPAM
     Dosage: TWICE A DAY
  13. METOPROLOL TARTRATE [Concomitant]
     Active Substance: METOPROLOL TARTRATE
     Dosage: OD

REACTIONS (1)
  - Renal cancer [Recovering/Resolving]

NARRATIVE: CASE EVENT DATE: 20250101
